FAERS Safety Report 15508596 (Version 1)
Quarter: 2018Q4

REPORT INFORMATION
  Report Type: Report from Study
  Country: MX (occurrence: MX)
  Receive Date: 20181016
  Receipt Date: 20181016
  Transmission Date: 20190205
  Serious: Yes (Other)
  Sender: FDA-Public Use
  Company Number: PHHY2018MX125524

PATIENT
  Age: 46 Year
  Sex: Male

DRUGS (4)
  1. IMURAN [Concomitant]
     Active Substance: AZATHIOPRINE
     Indication: MYELODYSPLASTIC SYNDROME
     Dosage: 2 DF, QD (4 MONTHS AGO APPROXIMATELY)
     Route: 065
  2. METICORTEN [Concomitant]
     Active Substance: PREDNISONE
     Indication: MYELODYSPLASTIC SYNDROME
     Dosage: 2 DF, QD
     Route: 065
     Dates: start: 201801
  3. FERRANINA [Concomitant]
     Indication: PRODUCT USED FOR UNKNOWN INDICATION
     Route: 065
  4. REVOLADE [Suspect]
     Active Substance: ELTROMBOPAG
     Indication: MYELODYSPLASTIC SYNDROME
     Dosage: 25 MG, QD WITH FOOD
     Route: 048
     Dates: start: 201803

REACTIONS (5)
  - Myelodysplastic syndrome [Not Recovered/Not Resolved]
  - Condition aggravated [Not Recovered/Not Resolved]
  - Platelet count decreased [Unknown]
  - Bone marrow myelogram abnormal [Unknown]
  - Product use in unapproved indication [Recovered/Resolved]

NARRATIVE: CASE EVENT DATE: 201803
